FAERS Safety Report 16258083 (Version 1)
Quarter: 2019Q2

REPORT INFORMATION
  Report Type: Spontaneous
  Country: US (occurrence: US)
  Receive Date: 20190430
  Receipt Date: 20190430
  Transmission Date: 20190711
  Serious: Yes (Hospitalization, Other)
  Sender: FDA-Public Use
  Company Number: US-GLAXOSMITHKLINE-US2019AMR075833

PATIENT
  Sex: Female

DRUGS (1)
  1. BREO ELLIPTA [Suspect]
     Active Substance: FLUTICASONE FUROATE\VILANTEROL TRIFENATATE
     Indication: LUNG DISORDER
     Dosage: UNK
     Route: 055
     Dates: start: 2017

REACTIONS (7)
  - Multiple fractures [Unknown]
  - Balance disorder [Unknown]
  - Joint injury [Unknown]
  - Fall [Unknown]
  - Product use in unapproved indication [Unknown]
  - Off label use [Unknown]
  - Rotator cuff syndrome [Unknown]
